FAERS Safety Report 23882218 (Version 2)
Quarter: 2024Q3

REPORT INFORMATION
  Report Type: Report from Study
  Country: GB (occurrence: GB)
  Receive Date: 20240522
  Receipt Date: 20240704
  Transmission Date: 20241016
  Serious: Yes (Death)
  Sender: ABBVIE
  Company Number: GB-ABBVIE-5765411

PATIENT
  Age: 48 Year
  Sex: Male
  Weight: 76 kg

DRUGS (6)
  1. VENETOCLAX [Suspect]
     Active Substance: VENETOCLAX
     Indication: Acute lymphocytic leukaemia
     Route: 048
     Dates: start: 20240304, end: 20240411
  2. NAVITOCLAX [Suspect]
     Active Substance: NAVITOCLAX
     Indication: Non-Hodgkin^s lymphoma
     Route: 048
     Dates: start: 20240307, end: 20240411
  3. OMEPRAZOLE [Concomitant]
     Active Substance: OMEPRAZOLE
     Indication: Gastrointestinal disorder prophylaxis
     Route: 048
  4. MIRTAZAPINE [Concomitant]
     Active Substance: MIRTAZAPINE
     Indication: Depression
     Route: 048
  5. OXYCODONE [Concomitant]
     Active Substance: OXYCODONE
     Indication: Pain
     Dosage: LIQUID AS REQUIRED
     Route: 048
  6. LORAZEPAM [Concomitant]
     Active Substance: LORAZEPAM
     Indication: Anxiety
     Dosage: AS REQUIRED
     Route: 048

REACTIONS (6)
  - Non-Hodgkin^s lymphoma [Fatal]
  - Abdominal pain [Recovered/Resolved]
  - T-cell type acute leukaemia [Fatal]
  - Off label use [Unknown]
  - Constipation [Unknown]
  - Haemoglobin decreased [Unknown]

NARRATIVE: CASE EVENT DATE: 20240101
